FAERS Safety Report 16940530 (Version 1)
Quarter: 2019Q4

REPORT INFORMATION
  Report Type: Spontaneous
  Country: US (occurrence: US)
  Receive Date: 20191018
  Receipt Date: 20191018
  Transmission Date: 20200122
  Serious: No
  Sender: FDA-Public Use
  Company Number: None

PATIENT
  Age: 52 Year
  Sex: Male
  Weight: 79.2 kg

DRUGS (2)
  1. XTAMPZA ER [Suspect]
     Active Substance: OXYCODONE
     Indication: PAIN
     Dosage: ?          QUANTITY:1 CAPSULE(S);?
     Route: 048
     Dates: start: 20191015, end: 20191016
  2. XTAMPZA ER [Suspect]
     Active Substance: OXYCODONE
     Indication: SARCOIDOSIS
     Dosage: ?          QUANTITY:1 CAPSULE(S);?
     Route: 048
     Dates: start: 20191015, end: 20191016

REACTIONS (5)
  - Flashback [None]
  - Hyperhidrosis [None]
  - Abdominal pain upper [None]
  - Muscle spasms [None]
  - Dysgeusia [None]

NARRATIVE: CASE EVENT DATE: 20191016
